FAERS Safety Report 6706593-3 (Version None)
Quarter: 2010Q2

REPORT INFORMATION
  Report Type: 
  Country: None (occurrence: None)
  Receive Date: 20100503
  Receipt Date: 20100427
  Transmission Date: 20101027
  Serious: Yes (Hospitalization)
  Sender: FDA-Public Use
  Company Number: US-TEVA-230730USA

PATIENT
  Sex: Male
  Weight: 77.18 kg

DRUGS (4)
  1. COPAXONE [Suspect]
     Indication: MULTIPLE SCLEROSIS
     Route: 058
  2. TROSPIUM CHLORIDE [Concomitant]
  3. BACLOFEN [Concomitant]
  4. PAROXETINE HCL [Concomitant]

REACTIONS (1)
  - DECUBITUS ULCER [None]
